FAERS Safety Report 10917386 (Version 1)
Quarter: 2015Q1

REPORT INFORMATION
  Report Type: Spontaneous
  Country: US (occurrence: US)
  Receive Date: 20150316
  Receipt Date: 20150316
  Transmission Date: 20150721
  Serious: No
  Sender: FDA-Public Use
  Company Number: US-ASTRAZENECA-2015SE21570

PATIENT
  Sex: Male

DRUGS (2)
  1. OMEPRAZOLE MAGNESIUM. [Suspect]
     Active Substance: OMEPRAZOLE MAGNESIUM
     Indication: COUGH
     Dosage: AS REQUIRED
     Route: 048
     Dates: start: 2013
  2. NEXIUM [Suspect]
     Active Substance: ESOMEPRAZOLE MAGNESIUM
     Indication: COUGH
     Route: 048
     Dates: start: 2007

REACTIONS (5)
  - Off label use [Unknown]
  - Blood glucose decreased [Unknown]
  - Product use issue [Unknown]
  - Intentional product misuse [Unknown]
  - Cough [Unknown]

NARRATIVE: CASE EVENT DATE: 2013
